FAERS Safety Report 23633657 (Version 2)
Quarter: 2024Q1

REPORT INFORMATION
  Report Type: Report from Study
  Country: US (occurrence: US)
  Receive Date: 20240314
  Receipt Date: 20240321
  Transmission Date: 20240410
  Serious: Yes (Death, Hospitalization, Other)
  Sender: FDA-Public Use
  Company Number: US-002147023-NVSC2020US058054

PATIENT
  Age: 45 Year
  Sex: Female
  Weight: 74.84 kg

DRUGS (5)
  1. TREPROSTINIL [Suspect]
     Active Substance: TREPROSTINIL
     Dosage: 64 NG/KG/MIN, CONT
     Route: 042
     Dates: start: 20200106
  2. TREPROSTINIL [Suspect]
     Active Substance: TREPROSTINIL
     Indication: Pulmonary arterial hypertension
     Dosage: 64 NG/KG/MIN, CONT
     Route: 042
     Dates: start: 20200106
  3. TREPROSTINIL [Suspect]
     Active Substance: TREPROSTINIL
     Dosage: 64 NG/KG/MIN, CONT
     Route: 042
  4. ADEMPAS [Concomitant]
     Active Substance: RIOCIGUAT
     Indication: Product used for unknown indication
     Dosage: UNK
     Route: 065
  5. OPSUMIT [Concomitant]
     Active Substance: MACITENTAN
     Indication: Product used for unknown indication
     Dosage: UNK
     Route: 065

REACTIONS (7)
  - Death [Fatal]
  - Pneumonia [Unknown]
  - COVID-19 [Unknown]
  - Respiratory distress [Unknown]
  - Dyspnoea [Unknown]
  - Hypotension [Unknown]
  - Medical device site pruritus [Unknown]

NARRATIVE: CASE EVENT DATE: 20200221
